FAERS Safety Report 11863621 (Version 2)
Quarter: 2016Q1

REPORT INFORMATION
  Report Type: Spontaneous
  Country: RU (occurrence: RU)
  Receive Date: 20151223
  Receipt Date: 20160127
  Transmission Date: 20160526
  Serious: Yes (Other)
  Sender: FDA-Public Use
  Company Number: RU-BAYER-2015-488342

PATIENT
  Age: 29 Year
  Sex: Female

DRUGS (1)
  1. YARINA [Suspect]
     Active Substance: DROSPIRENONE\ETHINYL ESTRADIOL
     Indication: UTERINE POLYP
     Dosage: UNK
     Route: 048
     Dates: start: 201412, end: 201512

REACTIONS (8)
  - Salpingo-oophoritis [Recovered/Resolved]
  - Hydrometra [None]
  - Abnormal withdrawal bleeding [None]
  - Uterine necrosis [None]
  - Abdominal pain lower [Recovered/Resolved]
  - Unevaluable event [None]
  - Endometrial hyperplasia [None]
  - Off label use [None]
